FAERS Safety Report 4867119-2 (Version None)
Quarter: 2005Q4

REPORT INFORMATION
  Report Type: 
  Country: None (occurrence: None)
  Receive Date: 20051221
  Receipt Date: 20051219
  Transmission Date: 20060501
  Serious: Yes (Life-Threatening, Hospitalization)
  Sender: FDA-Public Use
  Company Number: FRWYE957106SEP05

PATIENT
  Age: 60 Year
  Sex: Female

DRUGS (2)
  1. EFFEXOR XR [Suspect]
     Indication: DEPRESSION
     Dosage: 75 MG 1X PER 1 DAY ORAL
     Route: 048
     Dates: start: 20050101, end: 20050101
  2. MESTINON [Concomitant]

REACTIONS (3)
  - CONDITION AGGRAVATED [None]
  - MYASTHENIC SYNDROME [None]
  - VOCAL CORD PARALYSIS [None]
